FAERS Safety Report 10356252 (Version 2)
Quarter: 2015Q1

REPORT INFORMATION
  Report Type: Report from Study
  Country: AR (occurrence: AR)
  Receive Date: 20140801
  Receipt Date: 20150313
  Transmission Date: 20150720
  Serious: Yes (Other)
  Sender: FDA-Public Use
  Company Number: AR-BRISTOL-MYERS SQUIBB COMPANY-21240213

PATIENT
  Age: 56 Year
  Sex: Female

DRUGS (1)
  1. IXABEPILONE [Suspect]
     Active Substance: IXABEPILONE
     Indication: BREAST CANCER METASTATIC
     Dosage: 45 MG, Q3WK
     Route: 065
     Dates: start: 20140620, end: 20141229

REACTIONS (3)
  - Burning sensation [Unknown]
  - Vein discolouration [Unknown]
  - Pain [Unknown]

NARRATIVE: CASE EVENT DATE: 20140722
